FAERS Safety Report 8906163 (Version 1)
Quarter: 2012Q4

REPORT INFORMATION
  Report Type: Spontaneous
  Country: JP (occurrence: None)
  Receive Date: 20121109
  Receipt Date: 20121109
  Transmission Date: 20130627
  Serious: Yes (Hospitalization, Other)
  Sender: FDA-Public Use
  Company Number: CIP10002632

PATIENT
  Age: 86 Year
  Sex: Female

DRUGS (4)
  1. ACTONEL [Suspect]
     Indication: OSTEOPOROSIS
     Route: 048
     Dates: start: 20070712, end: 20100112
  2. GLAKAY (MENATETRENONE) [Concomitant]
  3. INFREE S (INDOMETACIN) [Concomitant]
  4. ZEPOLAS (FLURBIPROFEN) [Concomitant]

REACTIONS (3)
  - Fall [None]
  - Femur fracture [None]
  - High turnover osteopathy [None]
